FAERS Safety Report 8925634 (Version 1)
Quarter: 2012Q4

REPORT INFORMATION
  Report Type: 
  Country: FR (occurrence: FR)
  Receive Date: 20121126
  Receipt Date: 20121126
  Transmission Date: 20130627
  Serious: Yes (Hospitalization, Other)
  Sender: FDA-Public Use
  Company Number: FR-PFIZER INC-2012291937

PATIENT
  Age: 56 Year
  Sex: Male

DRUGS (12)
  1. TAHOR [Suspect]
     Dosage: 10 mg, 1x/day
     Route: 048
     Dates: end: 20121024
  2. TAVANIC [Suspect]
     Dosage: 250 mg, thrice weekly
     Route: 048
     Dates: start: 20121003, end: 20121024
  3. INEXIUM [Suspect]
     Dosage: 40 mg, 1x/day
     Route: 048
     Dates: start: 20120926, end: 20121024
  4. LASILIX [Suspect]
     Dosage: 500 mg, 2x/day
     Route: 048
     Dates: end: 20121024
  5. STILNOX [Suspect]
     Dosage: 0.5 DF, 1x/day
     Route: 048
     Dates: start: 20120927, end: 20121024
  6. AERIUS [Suspect]
     Indication: PRURITUS
     Dosage: 1 DF, 1x/day
     Route: 048
     Dates: end: 20121024
  7. PREVISCAN [Concomitant]
     Dosage: UNK
     Dates: end: 20121024
  8. CARDENSIEL [Concomitant]
     Dosage: UNK
     Dates: end: 20121024
  9. SMECTA [Concomitant]
     Dosage: UNK
     Dates: end: 20121024
  10. TIORFAN [Concomitant]
     Dosage: UNK
     Dates: end: 20121024
  11. RENAGEL [Concomitant]
     Dosage: UNK
     Dates: end: 20121024
  12. FORLAX [Concomitant]
     Dosage: UNK
     Dates: end: 20121024

REACTIONS (1)
  - Agranulocytosis [Recovering/Resolving]
